FAERS Safety Report 7505367-3 (Version None)
Quarter: 2011Q2

REPORT INFORMATION
  Report Type: 
  Country: None (occurrence: None)
  Receive Date: 20110526
  Receipt Date: 20110512
  Transmission Date: 20111010
  Serious: Yes (Other)
  Sender: FDA-Public Use
  Company Number: AT-JNJFOC-20110411101

PATIENT
  Age: 50 Year
  Sex: Female

DRUGS (7)
  1. RILMENIDINE [Concomitant]
  2. CALCIUM AND VITAMIN D [Concomitant]
     Dosage: 1000 MG/400 IU DAILY
  3. REMICADE [Suspect]
     Indication: PSORIATIC ARTHROPATHY
     Route: 042
     Dates: start: 20050501, end: 20110216
  4. METHOTREXATE [Concomitant]
  5. CITALOPRAM HYDROBROMIDE [Concomitant]
  6. FOLATE [Concomitant]
  7. DEXIBUPROFEN [Concomitant]

REACTIONS (1)
  - SQUAMOUS CELL CARCINOMA [None]
